FAERS Safety Report 14586909 (Version 1)
Quarter: 2018Q1

REPORT INFORMATION
  Report Type: Spontaneous
  Country: DE (occurrence: DE)
  Receive Date: 20180301
  Receipt Date: 20180301
  Transmission Date: 20180509
  Serious: Yes (Other)
  Sender: FDA-Public Use
  Company Number: DE-BAYER-2018-033066

PATIENT
  Age: 50 Year
  Sex: Female
  Weight: 87 kg

DRUGS (1)
  1. CIPROBAY 250 MG [Suspect]
     Active Substance: CIPROFLOXACIN
     Route: 048

REACTIONS (31)
  - Fibromyalgia [Unknown]
  - Disturbance in attention [Unknown]
  - Mitochondrial cytopathy [Unknown]
  - Oesophagitis [Unknown]
  - Arthralgia [Unknown]
  - Arrhythmia [Unknown]
  - Pain in extremity [Unknown]
  - Mineral deficiency [Unknown]
  - Muscular weakness [Unknown]
  - Muscle spasms [Unknown]
  - Metabolic disorder [Unknown]
  - Circulatory collapse [Unknown]
  - Premature menopause [Unknown]
  - Migraine with aura [Unknown]
  - Spinal pain [Unknown]
  - Hypotension [Unknown]
  - Adrenal disorder [Unknown]
  - Muscle twitching [Unknown]
  - Depression [Unknown]
  - Overweight [Unknown]
  - Pain [Unknown]
  - Visual impairment [Unknown]
  - Dizziness [Unknown]
  - Diarrhoea [Unknown]
  - Hypothyroidism [Unknown]
  - Hormone level abnormal [Unknown]
  - Weight bearing difficulty [Unknown]
  - Arthritis [Unknown]
  - Impaired work ability [Unknown]
  - Food intolerance [Unknown]
  - Fatigue [Unknown]

NARRATIVE: CASE EVENT DATE: 201212
